FAERS Safety Report 7968794-6 (Version None)
Quarter: 2011Q4

REPORT INFORMATION
  Report Type: 
  Country: None (occurrence: None)
  Receive Date: 20111208
  Receipt Date: 20111125
  Transmission Date: 20120403
  Serious: Yes (Death)
  Sender: FDA-Public Use
  Company Number: 2011CP000150

PATIENT
  Age: 55 Year
  Sex: Male

DRUGS (1)
  1. ACETAMINOPHEN [Suspect]
     Dosage: IV
     Route: 042

REACTIONS (2)
  - ERYTHEMA MULTIFORME [None]
  - PYREXIA [None]
